FAERS Safety Report 17013846 (Version 3)
Quarter: 2020Q3

REPORT INFORMATION
  Report Type: Spontaneous
  Country: US (occurrence: US)
  Receive Date: 20191111
  Receipt Date: 20200811
  Transmission Date: 20201102
  Serious: Yes (Hospitalization)
  Sender: FDA-Public Use
  Company Number: US-TEVA-2019-US-1135207

PATIENT
  Age: 61 Year
  Sex: Male

DRUGS (1)
  1. NORTRIPTYLINE [Suspect]
     Active Substance: NORTRIPTYLINE
     Indication: INTENTIONAL OVERDOSE
     Route: 048

REACTIONS (3)
  - Intentional overdose [Unknown]
  - Ventricular arrhythmia [Recovering/Resolving]
  - Tachycardia [Recovering/Resolving]
